FAERS Safety Report 20632971 (Version 1)
Quarter: 2022Q1

REPORT INFORMATION
  Report Type: Report from Study
  Country: DE (occurrence: DE)
  Receive Date: 20220324
  Receipt Date: 20220324
  Transmission Date: 20220423
  Serious: Yes (Other)
  Sender: FDA-Public Use
  Company Number: DE-TAKEDA-2022TUS018807

PATIENT
  Age: 46 Year
  Sex: Male
  Weight: 100 kg

DRUGS (12)
  1. ADVATE [Suspect]
     Active Substance: ANTIHEMOPHILIC FACTOR, HUMAN RECOMBINANT
     Indication: Factor VIII deficiency
     Dosage: 3000 INTERNATIONAL UNIT
     Route: 042
     Dates: start: 20120215
  2. ADVATE [Suspect]
     Active Substance: ANTIHEMOPHILIC FACTOR, HUMAN RECOMBINANT
     Indication: Factor VIII deficiency
     Dosage: 3000 INTERNATIONAL UNIT
     Route: 042
     Dates: start: 20120215
  3. ADVATE [Suspect]
     Active Substance: ANTIHEMOPHILIC FACTOR, HUMAN RECOMBINANT
     Indication: Factor VIII deficiency
     Dosage: 3000 INTERNATIONAL UNIT
     Route: 042
     Dates: start: 20120215
  4. CORTISONE ACETATE [Concomitant]
     Active Substance: CORTISONE ACETATE
     Indication: Psoriasis
     Dosage: 1 DOSAGE FORM, QD
     Route: 050
  5. CYKLOKAPRON [Concomitant]
     Active Substance: TRANEXAMIC ACID
     Indication: Oesophageal variceal ligation
     Dosage: 1 GRAM, TID
     Route: 048
     Dates: start: 20190416, end: 20190418
  6. SUCRALFATE [Concomitant]
     Active Substance: SUCRALFATE
     Indication: Gastritis
     Dosage: 1 DOSAGE FORM, TID
     Route: 048
  7. SUCRALFATE [Concomitant]
     Active Substance: SUCRALFATE
     Indication: Gastric mucosa erythema
     Dosage: 1 DOSAGE FORM, QD
     Route: 048
  8. EPCLUSA [Concomitant]
     Active Substance: SOFOSBUVIR\VELPATASVIR
     Indication: Immunosuppressant drug therapy
     Dosage: 1 DOSAGE FORM, QD
     Route: 048
     Dates: start: 20190723, end: 20190806
  9. TRANEXAMIC ACID [Concomitant]
     Active Substance: TRANEXAMIC ACID
     Indication: Haemorrhage prophylaxis
     Dosage: 1 GRAM, TID
     Route: 048
     Dates: start: 20191118, end: 20191119
  10. CARVEDILOL [Concomitant]
     Active Substance: CARVEDILOL
     Indication: Hypertension
     Dosage: 3 MILLIGRAM, QD
     Route: 048
     Dates: start: 20191118, end: 20191119
  11. TORSEMIDE [Concomitant]
     Active Substance: TORSEMIDE
     Indication: Hypertension
     Dosage: 5 MILLIGRAM, QD
     Route: 048
     Dates: start: 20191030
  12. ETORICOXIB [Concomitant]
     Active Substance: ETORICOXIB
     Indication: Analgesic therapy
     Dosage: 90 MILLIGRAM, QD
     Route: 048
     Dates: start: 20190903

REACTIONS (1)
  - Portal hypertension [Not Recovered/Not Resolved]

NARRATIVE: CASE EVENT DATE: 20190807
